FAERS Safety Report 7519623-6 (Version None)
Quarter: 2011Q2

REPORT INFORMATION
  Report Type: 
  Country: None (occurrence: None)
  Receive Date: 20110602
  Receipt Date: 20110524
  Transmission Date: 20111010
  Serious: Yes (Hospitalization)
  Sender: FDA-Public Use
  Company Number: A0928940A

PATIENT
  Age: 7 Year
  Sex: Female

DRUGS (2)
  1. NO CONCURRENT MEDICATION [Concomitant]
  2. ZOFRAN [Suspect]
     Indication: NAUSEA
     Dosage: 1TAB SINGLE DOSE
     Route: 048
     Dates: start: 20110514

REACTIONS (5)
  - BLINDNESS [None]
  - CATATONIA [None]
  - DEPRESSED LEVEL OF CONSCIOUSNESS [None]
  - DYSKINESIA [None]
  - LOSS OF CONSCIOUSNESS [None]
